FAERS Safety Report 6183323-8 (Version None)
Quarter: 2009Q2

REPORT INFORMATION
  Report Type: 
  Country: None (occurrence: None)
  Receive Date: 20090506
  Receipt Date: 20090423
  Transmission Date: 20091009
  Serious: Yes (Hospitalization)
  Sender: FDA-Public Use
  Company Number: SPV1-2009-00788

PATIENT
  Age: 21 Year
  Sex: Male

DRUGS (2)
  1. ELAPRASE [Suspect]
     Indication: MUCOPOLYSACCHARIDOSIS II
     Dosage: IV DRIP
     Route: 041
     Dates: start: 20040211
  2. BECLOMETHASONE DIPROPIONATE [Concomitant]

REACTIONS (1)
  - RENAL COLIC [None]
